FAERS Safety Report 7349286-4 (Version None)
Quarter: 2011Q1

REPORT INFORMATION
  Report Type: 
  Country: None (occurrence: None)
  Receive Date: 20110304
  Receipt Date: 20110228
  Transmission Date: 20110831
  Serious: Yes (Death, Hospitalization)
  Sender: FDA-Public Use
  Company Number: FK201100282

PATIENT
  Age: 64 Year
  Sex: Female
  Weight: 76 kg

DRUGS (10)
  1. PACLITAXEL [Suspect]
  2. DEXONA (DEXAMETHASONE) [Concomitant]
  3. PACLITAXEL [Suspect]
  4. MORPHINE SOLUTION (MORPHINE) [Concomitant]
  5. MOVON-P (ACECLO PLUS) [Concomitant]
  6. PACLITAXEL [Suspect]
  7. PACLITAXEL [Suspect]
     Indication: BREAST CANCER
     Dosage: CYCLE 2
  8. GRANISETRON (GRANISETRON) [Concomitant]
  9. CREMALAC (SODIUMPICOSULFATE) [Concomitant]
  10. PANTOPRAZOLE [Concomitant]

REACTIONS (4)
  - BLOOD GLUCOSE INCREASED [None]
  - BONE PAIN [None]
  - VISCERAL PAIN [None]
  - DYSPNOEA [None]
